FAERS Safety Report 4747192-2 (Version None)
Quarter: 2005Q3

REPORT INFORMATION
  Report Type: 
  Country: None (occurrence: None)
  Receive Date: 20050815
  Receipt Date: 20050217
  Transmission Date: 20060218
  Serious: Yes (Hospitalization)
  Sender: FDA-Public Use
  Company Number: MEDI-0002899

PATIENT
  Age: 12 Month
  Sex: Male
  Weight: 6.5 kg

DRUGS (9)
  1. SYNAGIS [Suspect]
     Indication: ANTIVIRAL PROPHYLAXIS
     Dosage: 1 IN 30 D, INTRAMUSCULAR
     Route: 030
     Dates: start: 20041001, end: 20050101
  2. SYNAGIS [Suspect]
     Indication: ANTIVIRAL PROPHYLAXIS
     Dosage: 1 IN 30 D, INTRAMUSCULAR
     Route: 030
     Dates: start: 20041001
  3. SYNAGIS [Suspect]
     Indication: ANTIVIRAL PROPHYLAXIS
     Dosage: 1 IN 30 D, INTRAMUSCULAR
     Route: 030
     Dates: start: 20041101
  4. SYNAGIS [Suspect]
     Indication: ANTIVIRAL PROPHYLAXIS
     Dosage: 1 IN 30 D, INTRAMUSCULAR
     Route: 030
     Dates: start: 20041201
  5. REGLAN [Concomitant]
  6. PREVACID [Concomitant]
  7. ALBUTEROL [Concomitant]
  8. PULMICORT [Concomitant]
  9. INTAL [Concomitant]

REACTIONS (4)
  - MALAISE [None]
  - OXYGEN SATURATION DECREASED [None]
  - RESPIRATORY SYNCYTIAL VIRUS INFECTION [None]
  - UPPER RESPIRATORY TRACT INFECTION [None]
